FAERS Safety Report 20090141 (Version 1)
Quarter: 2021Q4

REPORT INFORMATION
  Report Type: Spontaneous
  Country: JP (occurrence: JP)
  Receive Date: 20211119
  Receipt Date: 20211119
  Transmission Date: 20220303
  Serious: Yes (Hospitalization, Other)
  Sender: FDA-Public Use
  Company Number: JP-MLMSERVICE-20211104-3204932-1

PATIENT
  Age: 79 Year
  Sex: Male

DRUGS (2)
  1. FLUOROURACIL [Suspect]
     Active Substance: FLUOROURACIL
     Indication: Hypopharyngeal cancer
     Route: 042
  2. CARBOPLATIN [Concomitant]
     Active Substance: CARBOPLATIN
     Indication: Hypopharyngeal cancer

REACTIONS (5)
  - Lactic acidosis [Recovering/Resolving]
  - Hyperammonaemic encephalopathy [Recovering/Resolving]
  - Gastric ulcer [Recovering/Resolving]
  - Portal venous gas [Recovered/Resolved]
  - Gastrointestinal toxicity [Recovering/Resolving]
